FAERS Safety Report 10096253 (Version 1)
Quarter: 2014Q2

REPORT INFORMATION
  Report Type: Spontaneous
  Country: US (occurrence: None)
  Receive Date: 20140410
  Receipt Date: 20140410
  Transmission Date: 20141212
  Serious: Yes (Death, Hospitalization)
  Sender: FDA-Public Use
  Company Number: 2014-00799

PATIENT
  Age: 31 Year
  Sex: Male

DRUGS (5)
  1. ESZOPICLONE (UNKNOWN) [Suspect]
     Indication: PRODUCT USED FOR UNKNOWN INDICATION
     Dosage: UNKNOWN (UNKNOWN, UNKNOWN, UNKNOWN) UNKNOWN THERAPY DATES
  2. LAMOTRIGINE (UNKNOWN) (LAMOTRIGINE) [Suspect]
     Indication: PRODUCT USED FOR UNKNOWN INDICATION
     Dosage: UNKNOWN (UNKNOWN, UNKNOWN, UNKNOWN)  DOSE TEXT UNKNOWN-UNKNOWN THERAPYDATES
  3. CITALOPRAM (UNKNOWN) (CITALOPRAM) [Suspect]
     Indication: PRODUCT USED FOR UNKNOWN INDICATION
     Dosage: UNKNOWN  (UNKNOWN , UNKNOWN, UNKNOWN) DOSE (UNKNOWN-UNKNOWN THERAPY DATES)
  4. AMPHETAMINE /DEXTROAMPHETAMINE (UNKNOWN) [Concomitant]
  5. HYDROCODONE (UNKNOWN) [Suspect]
     Indication: PRODUCT USED FOR UNKNOWN INDICATION
     Dosage: UNKNOWN (UNKNOWN, UNKNOWN, UNKNOWN) , UNKNOWN

REACTIONS (1)
  - Completed suicide [None]
